FAERS Safety Report 6189187-0 (Version None)
Quarter: 2009Q2

REPORT INFORMATION
  Report Type: 
  Country: None (occurrence: None)
  Receive Date: 20090512
  Receipt Date: 20090427
  Transmission Date: 20091009
  Serious: Yes (Hospitalization)
  Sender: FDA-Public Use
  Company Number: 2008002031

PATIENT
  Age: 67 Year
  Sex: Male
  Weight: 60 kg

DRUGS (6)
  1. ERLOTINIB      (ERLOTINIB) (TABLET) [Suspect]
     Indication: LUNG ADENOCARCINOMA
     Dosage: (150 MG, QD), ORAL; (100 MG, QD), ORAL
     Route: 048
     Dates: start: 20080625, end: 20080804
  2. ERLOTINIB      (ERLOTINIB) (TABLET) [Suspect]
     Indication: LUNG ADENOCARCINOMA
     Dosage: (150 MG, QD), ORAL; (100 MG, QD), ORAL
     Route: 048
     Dates: start: 20080728, end: 20080804
  3. LASIX [Concomitant]
  4. ACECOL  (TEMOCAPRIL HYDROCHLORIDE) [Concomitant]
  5. ASPIRIN [Concomitant]
  6. IRESSA [Concomitant]

REACTIONS (6)
  - C-REACTIVE PROTEIN INCREASED [None]
  - DIZZINESS [None]
  - INFECTION [None]
  - PARAESTHESIA ORAL [None]
  - PYREXIA [None]
  - RASH [None]
